FAERS Safety Report 12517863 (Version 4)
Quarter: 2016Q4

REPORT INFORMATION
  Report Type: Spontaneous
  Country: US (occurrence: US)
  Receive Date: 20160630
  Receipt Date: 20161125
  Transmission Date: 20170207
  Serious: Yes (Death)
  Sender: FDA-Public Use
  Company Number: US-ELI_LILLY_AND_COMPANY-US201606009333

PATIENT
  Sex: Male

DRUGS (1)
  1. HUMULIN R [Suspect]
     Active Substance: INSULIN HUMAN
     Indication: INSULIN RESISTANCE
     Dosage: 5000 U, QD
     Route: 065
     Dates: end: 1991

REACTIONS (2)
  - Diabetes mellitus inadequate control [Unknown]
  - Diabetic ketoacidosis [Fatal]
